FAERS Safety Report 15084705 (Version 1)
Quarter: 2018Q2

REPORT INFORMATION
  Report Type: Spontaneous
  Country: US (occurrence: US)
  Receive Date: 20180608
  Receipt Date: 20180608
  Transmission Date: 20180711
  Serious: Yes (Hospitalization)
  Sender: FDA-Public Use
  Company Number: None

PATIENT
  Age: 67 Year
  Sex: Female
  Weight: 60.78 kg

DRUGS (7)
  1. CAPECITABINE 500MG [Suspect]
     Active Substance: CAPECITABINE
     Indication: NEOPLASM MALIGNANT
     Route: 048
     Dates: start: 20180222
  2. ACYCLOVIR. [Concomitant]
     Active Substance: ACYCLOVIR
  3. ZOFRAN [Concomitant]
     Active Substance: ONDANSETRON HYDROCHLORIDE
  4. GABAPENTIN. [Concomitant]
     Active Substance: GABAPENTIN
  5. DOXYCYCLINE. [Concomitant]
     Active Substance: DOXYCYCLINE
  6. LETROZOLE. [Concomitant]
     Active Substance: LETROZOLE
  7. NEUPOGEN [Concomitant]
     Active Substance: FILGRASTIM

REACTIONS (2)
  - Vomiting [None]
  - Dehydration [None]

NARRATIVE: CASE EVENT DATE: 20180601
